FAERS Safety Report 7072958-6 (Version None)
Quarter: 2010Q4

REPORT INFORMATION
  Report Type: 
  Country: None (occurrence: None)
  Receive Date: 20101029
  Receipt Date: 20100511
  Transmission Date: 20110411
  Serious: No
  Sender: FDA-Public Use
  Company Number: A0853499A

PATIENT
  Age: 65 Year
  Sex: Female

DRUGS (4)
  1. ADVAIR DISKUS 100/50 [Suspect]
     Indication: THROAT IRRITATION
     Dosage: 1PUFF TWICE PER DAY
     Route: 055
     Dates: start: 20100119
  2. PRILOSEC [Concomitant]
  3. IBUPROFEN [Concomitant]
  4. NORCO [Concomitant]

REACTIONS (4)
  - CHEST DISCOMFORT [None]
  - PRODUCT QUALITY ISSUE [None]
  - THERAPY REGIMEN CHANGED [None]
  - WHEEZING [None]
